FAERS Safety Report 21292645 (Version 1)
Quarter: 2022Q3

REPORT INFORMATION
  Report Type: Spontaneous
  Country: SE (occurrence: SE)
  Receive Date: 20220905
  Receipt Date: 20220905
  Transmission Date: 20221027
  Serious: Yes (Hospitalization)
  Sender: FDA-Public Use
  Company Number: None

PATIENT
  Age: 71 Year
  Sex: Female

DRUGS (2)
  1. METHOTREXATE [Suspect]
     Active Substance: METHOTREXATE
     Indication: Rheumatoid arthritis
     Dosage: 10 MG, DURATION-21 YEARS
     Dates: start: 20010829, end: 20220701
  2. REMICADE [Suspect]
     Active Substance: INFLIXIMAB
     Indication: Rheumatoid arthritis
     Dosage: 300 MG, THERAPY END DATE: NOT ASKED
     Dates: start: 20170822

REACTIONS (1)
  - Pulmonary toxicity [Recovered/Resolved]

NARRATIVE: CASE EVENT DATE: 20220615
